FAERS Safety Report 12580947 (Version 1)
Quarter: 2016Q3

REPORT INFORMATION
  Report Type: Spontaneous
  Country: US (occurrence: US)
  Receive Date: 20160721
  Receipt Date: 20160721
  Transmission Date: 20161109
  Serious: Yes (Hospitalization, Other)
  Sender: FDA-Public Use
  Company Number: US-JNJFOC-20160714973

PATIENT
  Age: 69 Year
  Sex: Female

DRUGS (7)
  1. IMBRUVICA [Suspect]
     Active Substance: IBRUTINIB
     Indication: CHRONIC LYMPHOCYTIC LEUKAEMIA
     Route: 048
     Dates: start: 20160223, end: 20160302
  2. ATORVASTATIN [Concomitant]
     Active Substance: ATORVASTATIN
  3. QUETIAPINE. [Concomitant]
     Active Substance: QUETIAPINE
  4. BUPROPION. [Concomitant]
     Active Substance: BUPROPION
  5. VENLAFAXINE [Concomitant]
     Active Substance: VENLAFAXINE HYDROCHLORIDE
  6. ALLOPURINOL. [Concomitant]
     Active Substance: ALLOPURINOL
     Dates: end: 20160302
  7. HYDROCHLOROTHIAZIDE. [Concomitant]
     Active Substance: HYDROCHLOROTHIAZIDE

REACTIONS (6)
  - Atrial fibrillation [Recovered/Resolved]
  - Abdominal distension [Unknown]
  - Rash pruritic [Unknown]
  - Body temperature increased [Unknown]
  - Pneumonitis [Unknown]
  - Bronchitis [Unknown]

NARRATIVE: CASE EVENT DATE: 2016
